FAERS Safety Report 13108775 (Version 1)
Quarter: 2017Q1

REPORT INFORMATION
  Report Type: Spontaneous
  Country: US (occurrence: US)
  Receive Date: 20170112
  Receipt Date: 20170112
  Transmission Date: 20170428
  Serious: No
  Sender: FDA-Public Use
  Company Number: None

PATIENT
  Sex: Female

DRUGS (1)
  1. CAPECITABINE TAB 500MG [Suspect]
     Active Substance: CAPECITABINE
     Dosage: 500 MG - 3 TABS BID DAYS 1-14 ORAL
     Route: 048

REACTIONS (5)
  - Skin burning sensation [None]
  - Palmar-plantar erythrodysaesthesia syndrome [None]
  - Headache [None]
  - Erythema [None]
  - Abdominal pain upper [None]
